FAERS Safety Report 25443356 (Version 1)
Quarter: 2025Q2

REPORT INFORMATION
  Report Type: Spontaneous
  Country: MN (occurrence: MN)
  Receive Date: 20250617
  Receipt Date: 20250617
  Transmission Date: 20250716
  Serious: Yes (Other)
  Sender: ROCHE
  Company Number: MN-ROCHE-10000314005

PATIENT

DRUGS (3)
  1. AVASTIN [Suspect]
     Active Substance: BEVACIZUMAB
     Indication: Product used for unknown indication
     Route: 050
  2. AVASTIN [Suspect]
     Active Substance: BEVACIZUMAB
     Indication: Product used for unknown indication
     Route: 050
  3. AVASTIN [Suspect]
     Active Substance: BEVACIZUMAB
     Route: 050

REACTIONS (5)
  - Endophthalmitis [Unknown]
  - Suspected transmission of an infectious agent via product [Unknown]
  - Off label use [Unknown]
  - Intentional product use issue [Unknown]
  - Toxic anterior segment syndrome [Unknown]
